FAERS Safety Report 5815804-8 (Version None)
Quarter: 2008Q3

REPORT INFORMATION
  Report Type: 
  Country: None (occurrence: None)
  Receive Date: 20080721
  Receipt Date: 20080717
  Transmission Date: 20090109
  Serious: Yes (Death)
  Sender: FDA-Public Use
  Company Number: BE-JNJFOC-20080702250

PATIENT
  Sex: Female
  Weight: 60 kg

DRUGS (4)
  1. TOPAMAX [Suspect]
     Indication: MIGRAINE
     Route: 048
  2. STAURODORM [Suspect]
     Indication: DRUG USE FOR UNKNOWN INDICATION
  3. IMITREX [Concomitant]
     Route: 042
  4. LIVIAL [Concomitant]
     Indication: MENOPAUSE

REACTIONS (2)
  - ASPHYXIA [None]
  - COMPLETED SUICIDE [None]
